FAERS Safety Report 9160441 (Version 1)
Quarter: 2013Q1

REPORT INFORMATION
  Report Type: Spontaneous
  Country: JP (occurrence: JP)
  Receive Date: 20130313
  Receipt Date: 20130313
  Transmission Date: 20140127
  Serious: Yes (Other)
  Sender: FDA-Public Use
  Company Number: JP-UCBSA-080454

PATIENT
  Age: 43 Year
  Sex: Female

DRUGS (1)
  1. XYZAL [Suspect]
     Indication: URTICARIA CHRONIC
     Route: 048
     Dates: start: 20121217

REACTIONS (2)
  - Abortion threatened [Unknown]
  - Pregnancy [Unknown]
